FAERS Safety Report 19380190 (Version 1)
Quarter: 2021Q2

REPORT INFORMATION
  Report Type: Spontaneous
  Country: DE (occurrence: DE)
  Receive Date: 20210607
  Receipt Date: 20210607
  Transmission Date: 20210717
  Serious: Yes (Death, Other)
  Sender: FDA-Public Use
  Company Number: DE-AUROBINDO-AUR-APL-2021-023248

PATIENT
  Sex: Male

DRUGS (10)
  1. THIOTEPA. [Suspect]
     Active Substance: THIOTEPA
     Indication: PREMEDICATION
     Dosage: 560 MILLIGRAM, ONCE A DAY
     Route: 042
     Dates: start: 20190913, end: 20190913
  2. PLERIXAFOR [Suspect]
     Active Substance: PLERIXAFOR
     Indication: NON-HODGKIN^S LYMPHOMA
     Dosage: UNK UNK, ONCE A DAY
     Route: 058
     Dates: start: 20190722, end: 20190723
  3. VALSARTAN. [Concomitant]
     Active Substance: VALSARTAN
     Indication: PREMEDICATION
     Dosage: 160 MILLIGRAM, TWO TIMES A DAY
     Route: 048
     Dates: start: 20191001
  4. ATORVASTATIN CALCIUM. [Concomitant]
     Active Substance: ATORVASTATIN CALCIUM
     Indication: PREMEDICATION
     Dosage: 21.65 MILLIGRAM, ONCE A DAY
     Route: 048
     Dates: start: 20191001
  5. MAGNESIUM [Concomitant]
     Active Substance: MAGNESIUM
     Indication: PROPHYLAXIS
     Dosage: 250 MILLIGRAM, ONCE A DAY
     Route: 048
     Dates: start: 20190708, end: 20190922
  6. CYTARABINE. [Suspect]
     Active Substance: CYTARABINE
     Indication: PREMEDICATION
     Dosage: 760 MILLIGRAM, ONCE A DAY
     Route: 042
     Dates: start: 20190914, end: 20190917
  7. ETOPOSIDE. [Suspect]
     Active Substance: ETOPOSIDE
     Indication: PREMEDICATION
     Dosage: 280 MILLIGRAM, ONCE A DAY
     Route: 042
     Dates: start: 20190914, end: 20190917
  8. AMOXICILLIN. [Concomitant]
     Active Substance: AMOXICILLIN
     Indication: PRODUCT USED FOR UNKNOWN INDICATION
     Dosage: 500 MILLIGRAM, FOUR TIMES/DAY
     Route: 048
  9. BISOPROLOL [Concomitant]
     Active Substance: BISOPROLOL
     Indication: PREMEDICATION
     Dosage: 2.5 MILLIGRAM, TWO TIMES A DAY
     Route: 048
     Dates: start: 20191001
  10. MELPHALAN. [Suspect]
     Active Substance: MELPHALAN
     Indication: PREMEDICATION
     Dosage: 260 MILLIGRAM, ONCE A DAY
     Route: 042
     Dates: start: 20190918, end: 20190918

REACTIONS (3)
  - Neutropenic sepsis [Not Recovered/Not Resolved]
  - Cytomegalovirus infection reactivation [Unknown]
  - Multiple organ dysfunction syndrome [Fatal]

NARRATIVE: CASE EVENT DATE: 20190920
